FAERS Safety Report 7943959-8 (Version None)
Quarter: 2011Q4

REPORT INFORMATION
  Report Type: 
  Country: None (occurrence: None)
  Receive Date: 20111128
  Receipt Date: 20111117
  Transmission Date: 20120403
  Serious: Yes (Hospitalization)
  Sender: FDA-Public Use
  Company Number: US-ASTRAZENECA-2011SE70608

PATIENT
  Sex: Female
  Weight: 97.1 kg

DRUGS (13)
  1. ALBUTEROL [Concomitant]
     Dosage: QID AS NEEDED
     Route: 055
     Dates: start: 20101111
  2. PULMICORT [Suspect]
     Dosage: 0.25 MG/2 ML TWO TIMES A DAY
     Route: 055
  3. LISINOPRIL [Suspect]
     Route: 048
  4. SYMBICORT [Suspect]
     Dosage: 160/4.5 MCG TWO PUFFS BID
     Route: 055
  5. ALLERGY RELIEF [Concomitant]
  6. PRASUGREL HCL [Concomitant]
     Route: 048
  7. ALBUTEROL [Concomitant]
     Dosage: ONCE TO TWICE A DAY
     Route: 055
  8. TENEX [Concomitant]
     Route: 048
  9. ZOLPIDEM TARTRATE [Concomitant]
     Indication: SLEEP DISORDER
     Route: 048
  10. HYDROCHLOROTHIAZIDE [Concomitant]
     Route: 048
  11. ATROVENT [Concomitant]
     Dosage: QID AS NEEDED
     Dates: start: 20101111
  12. COREG [Concomitant]
     Route: 048
  13. PRAVASTATIN SODIUM/ASPIRIN EC [Concomitant]
     Dosage: 40 MG/325 MG
     Route: 048

REACTIONS (14)
  - DIASTOLIC DYSFUNCTION [None]
  - RENAL FAILURE CHRONIC [None]
  - CORONARY ARTERY DISEASE [None]
  - PULMONARY GRANULOMA [None]
  - SLEEP DISORDER [None]
  - ACUTE MYOCARDIAL INFARCTION [None]
  - CHRONIC OBSTRUCTIVE PULMONARY DISEASE [None]
  - RENAL ARTERY STENOSIS [None]
  - CHOLELITHIASIS [None]
  - HYPOKINESIA [None]
  - HYPERTENSION [None]
  - LEFT VENTRICULAR DYSFUNCTION [None]
  - HYPERLIPIDAEMIA [None]
  - OBESITY [None]
